FAERS Safety Report 11396246 (Version 4)
Quarter: 2020Q4

REPORT INFORMATION
  Report Type: Spontaneous
  Country: US (occurrence: US)
  Receive Date: 20150819
  Receipt Date: 20201113
  Transmission Date: 20210113
  Serious: Yes (Hospitalization)
  Sender: FDA-Public Use
  Company Number: US-JNJFOC-20150803756

PATIENT
  Age: 84 Year
  Sex: Male

DRUGS (15)
  1. TRAMADOL. [Concomitant]
     Active Substance: TRAMADOL
     Indication: PRODUCT USED FOR UNKNOWN INDICATION
     Route: 065
  2. FOLIC ACID. [Concomitant]
     Active Substance: FOLIC ACID
     Indication: PRODUCT USED FOR UNKNOWN INDICATION
     Route: 065
  3. FLOMAX [Concomitant]
     Active Substance: TAMSULOSIN HYDROCHLORIDE
     Dates: start: 2001
  4. LACTULOSE. [Concomitant]
     Active Substance: LACTULOSE
  5. ACETAMINOPHEN. [Concomitant]
     Active Substance: ACETAMINOPHEN
     Indication: PRODUCT USED FOR UNKNOWN INDICATION
     Route: 065
  6. BISACODYL. [Concomitant]
     Active Substance: BISACODYL
     Indication: PRODUCT USED FOR UNKNOWN INDICATION
     Route: 054
  7. XARELTO [Suspect]
     Active Substance: RIVAROXABAN
     Indication: KNEE ARTHROPLASTY
  8. ZETIA [Concomitant]
     Active Substance: EZETIMIBE
  9. METOPROLOL. [Concomitant]
     Active Substance: METOPROLOL
     Dates: start: 2001
  10. VYTORIN [Concomitant]
     Active Substance: EZETIMIBE\SIMVASTATIN
     Dates: start: 2001, end: 2014
  11. ALBUTEROL. [Concomitant]
     Active Substance: ALBUTEROL
     Indication: PRODUCT USED FOR UNKNOWN INDICATION
     Route: 065
  12. DIOVAN [Concomitant]
     Active Substance: VALSARTAN
     Dates: start: 2001, end: 2014
  13. VITAMIN D3 [Concomitant]
     Active Substance: CHOLECALCIFEROL
  14. XARELTO [Suspect]
     Active Substance: RIVAROXABAN
     Indication: THROMBOSIS PROPHYLAXIS
     Route: 048
     Dates: start: 20140405, end: 20140415
  15. ZOCOR [Concomitant]
     Active Substance: SIMVASTATIN

REACTIONS (1)
  - Upper gastrointestinal haemorrhage [Unknown]

NARRATIVE: CASE EVENT DATE: 20140415
